FAERS Safety Report 22053178 (Version 3)
Quarter: 2023Q1

REPORT INFORMATION
  Report Type: Spontaneous
  Country: US (occurrence: US)
  Receive Date: 20230302
  Receipt Date: 20230306
  Transmission Date: 20230417
  Serious: Yes (Hospitalization, Other)
  Sender: FDA-Public Use
  Company Number: US-SANOFI-01510956

PATIENT
  Age: 69 Year
  Sex: Male

DRUGS (3)
  1. LANTUS SOLOSTAR [Suspect]
     Active Substance: INSULIN GLARGINE
     Indication: Type 2 diabetes mellitus
     Dosage: 12-16 UNITS, QD
  2. PREDNISONE [Concomitant]
     Active Substance: PREDNISONE
     Dosage: UNK
  3. NOVOLOG [Concomitant]
     Active Substance: INSULIN ASPART
     Dosage: UNK

REACTIONS (3)
  - Anti-neutrophil cytoplasmic antibody positive vasculitis [Unknown]
  - Blood glucose abnormal [Unknown]
  - Inappropriate schedule of product administration [Unknown]

NARRATIVE: CASE EVENT DATE: 20230101
